FAERS Safety Report 19369937 (Version 2)
Quarter: 2021Q2

REPORT INFORMATION
  Report Type: Spontaneous
  Country: US (occurrence: US)
  Receive Date: 20210603
  Receipt Date: 20210616
  Transmission Date: 20210717
  Serious: Yes (Other)
  Sender: FDA-Public Use
  Company Number: US-CHIESI-2021CHF02687

PATIENT
  Age: 1 Year
  Sex: Female

DRUGS (4)
  1. BETHKIS [Suspect]
     Active Substance: TOBRAMYCIN
     Indication: OFF LABEL USE
  2. BETHKIS [Suspect]
     Active Substance: TOBRAMYCIN
     Indication: BURKHOLDERIA MALLEI INFECTION
  3. BETHKIS [Suspect]
     Active Substance: TOBRAMYCIN
     Indication: BURKHOLDERIA PSEUDOMALLEI INFECTION
  4. BETHKIS [Suspect]
     Active Substance: TOBRAMYCIN
     Indication: PSEUDOMONAS INFECTION
     Dosage: 1 DOSAGE FORM, BID
     Route: 055
     Dates: start: 202105

REACTIONS (2)
  - Off label use [Not Recovered/Not Resolved]
  - Haemorrhage [Unknown]

NARRATIVE: CASE EVENT DATE: 202105
